FAERS Safety Report 5365353-9 (Version None)
Quarter: 2007Q2

REPORT INFORMATION
  Report Type: 
  Country: None (occurrence: None)
  Receive Date: 20070621
  Receipt Date: 20070613
  Transmission Date: 20071010
  Serious: Yes (Other)
  Sender: FDA-Public Use
  Company Number: CA-ROCHE-502291

PATIENT
  Age: 76 Year
  Sex: Female

DRUGS (6)
  1. XELODA [Suspect]
     Indication: DRUG USE FOR UNKNOWN INDICATION
     Route: 048
  2. OXALIPLATIN [Suspect]
     Indication: DRUG USE FOR UNKNOWN INDICATION
     Dosage: 250 MG TAKEN 17 TIMES IN AYEAR.
     Route: 042
  3. CILAZAPRIL [Concomitant]
  4. DIURETIC [Concomitant]
  5. LOSEC [Concomitant]
  6. EFFEXOR [Concomitant]

REACTIONS (2)
  - GAIT DISTURBANCE [None]
  - MYOPATHY [None]
